FAERS Safety Report 20327267 (Version 1)
Quarter: 2022Q1

REPORT INFORMATION
  Report Type: Spontaneous
  Country: DE (occurrence: DE)
  Receive Date: 20220112
  Receipt Date: 20220112
  Transmission Date: 20220423
  Serious: Yes (Other)
  Sender: FDA-Public Use
  Company Number: DE-NOVARTISPH-NVSC2022DE005151

PATIENT
  Sex: Female

DRUGS (2)
  1. CARBOPLATIN [Suspect]
     Active Substance: CARBOPLATIN
     Indication: Ovarian cancer
     Dosage: UNK, CYCLIC (MONO AUC 5, 4 CYCLES)
     Route: 065
  2. CARBOPLATIN [Suspect]
     Active Substance: CARBOPLATIN
     Dosage: UNK, CYCLIC (DOSE REDUCED TO AUC 4 FROM 3RD CYCLE AND FURTHER TO AUC 3 FROM 4TH CYCLE)
     Route: 065

REACTIONS (5)
  - Large intestinal stenosis [Unknown]
  - Thrombocytopenia [Unknown]
  - Ovarian cancer [Unknown]
  - Malignant neoplasm progression [Unknown]
  - Anaemia [Unknown]

NARRATIVE: CASE EVENT DATE: 20191201
